FAERS Safety Report 16623109 (Version 2)
Quarter: 2019Q3

REPORT INFORMATION
  Report Type: Spontaneous
  Country: IE (occurrence: IE)
  Receive Date: 20190723
  Receipt Date: 20190808
  Transmission Date: 20191004
  Serious: Yes (Life-Threatening, Other)
  Sender: FDA-Public Use
  Company Number: IE-TEVA-2019-IE-1080671

PATIENT
  Age: 69 Year
  Sex: Female

DRUGS (7)
  1. KLACID IV [Suspect]
     Active Substance: CLARITHROMYCIN
     Dosage: BATCH EXPIRY NOV/2020
     Route: 042
     Dates: start: 20190601, end: 20190605
  2. LOPERAMIDE (G) [Interacting]
     Active Substance: LOPERAMIDE
     Indication: GASTROINTESTINAL STOMA COMPLICATION
     Route: 048
     Dates: end: 20190611
  3. CODEINE (G) [Concomitant]
     Dosage: DOSE INCREASED
     Dates: start: 20190520
  4. CLARITHROMYCIN 500 MG FILM-COATED TABLETS [Suspect]
     Active Substance: CLARITHROMYCIN
     Indication: PNEUMONIA
     Dosage: 500MG PER 12HRS
     Route: 048
     Dates: start: 20190605, end: 20190611
  5. CODEINE (G) [Concomitant]
     Indication: GASTROINTESTINAL STOMA COMPLICATION
     Dosage: PRESCRIBED DOSE ON ADMISSION ON 19/MAY/2019
  6. IMODIUM [Interacting]
     Active Substance: LOPERAMIDE HYDROCHLORIDE
     Indication: GASTROINTESTINAL STOMA COMPLICATION
     Route: 048
     Dates: end: 20190611
  7. CODEINE (G) [Concomitant]
     Dosage: DOSE INCREASED
     Dates: start: 20190523

REACTIONS (5)
  - Drug interaction [Recovered/Resolved]
  - Torsade de pointes [Recovered/Resolved]
  - Hypertension [Unknown]
  - Cardiac arrest [Recovered/Resolved]
  - Ventricular fibrillation [Recovered/Resolved]

NARRATIVE: CASE EVENT DATE: 20190611
